FAERS Safety Report 10213987 (Version 3)
Quarter: 2014Q3

REPORT INFORMATION
  Report Type: Spontaneous
  Country: BE (occurrence: None)
  Receive Date: 20140530
  Receipt Date: 20140707
  Transmission Date: 20150326
  Serious: Yes (Other)
  Sender: FDA-Public Use
  Company Number: ADR-2014-00898

PATIENT
  Age: 12 Year
  Sex: Male

DRUGS (1)
  1. LIORESAL [Suspect]
     Active Substance: BACLOFEN

REACTIONS (4)
  - Device occlusion [None]
  - Device leakage [None]
  - Fibrosis [None]
  - Cerebrospinal fluid leakage [None]

NARRATIVE: CASE EVENT DATE: 20140513
